FAERS Safety Report 4739035-8 (Version None)
Quarter: 2005Q3

REPORT INFORMATION
  Report Type: 
  Country: None (occurrence: None)
  Receive Date: 20050801
  Receipt Date: 20050111
  Transmission Date: 20060218
  Serious: Yes (Other)
  Sender: FDA-Public Use
  Company Number: 211653

PATIENT
  Age: 65 Year
  Sex: Male

DRUGS (1)
  1. RITUXAN [Suspect]
     Indication: NON-HODGKIN'S LYMPHOMA
     Dosage: 1/WEEK, INTRAVENOUS
     Route: 042
     Dates: start: 20030512, end: 20030602

REACTIONS (1)
  - PANCYTOPENIA [None]
